FAERS Safety Report 15832909 (Version 2)
Quarter: 2019Q1

REPORT INFORMATION
  Report Type: Spontaneous
  Country: JP (occurrence: JP)
  Receive Date: 20190116
  Receipt Date: 20190131
  Transmission Date: 20190417
  Serious: Yes (Hospitalization)
  Sender: FDA-Public Use
  Company Number: JP-BAYER-2019-012342

PATIENT
  Age: 75 Year
  Sex: Male
  Weight: 43 kg

DRUGS (9)
  1. QUETIAPINE. [Concomitant]
     Active Substance: QUETIAPINE
     Indication: RESTLESSNESS
     Dosage: DAILY DOSE 50MG
     Route: 048
     Dates: start: 20181201, end: 20181212
  2. BELSOMRA [Concomitant]
     Active Substance: SUVOREXANT
     Indication: INSOMNIA
     Dosage: DAILY DOSE 15 MG
     Route: 048
     Dates: start: 20181201
  3. BAYASPIRIN 100 MG [Suspect]
     Active Substance: ASPIRIN
     Indication: THROMBOSIS PROPHYLAXIS
     Dosage: DAILY DOSE 100 MG
     Route: 050
     Dates: start: 20190115
  4. MAGMITT [Concomitant]
     Active Substance: MAGNESIUM OXIDE
     Indication: CONSTIPATION
     Dosage: DAILY DOSE 660MG
     Route: 048
     Dates: start: 20181201, end: 20181219
  5. ROZEREM [Concomitant]
     Active Substance: RAMELTEON
     Indication: INSOMNIA
     Dosage: DAILY DOSE 8MG
     Route: 048
     Dates: start: 20181203
  6. BAYASPIRIN 100 MG [Suspect]
     Active Substance: ASPIRIN
     Indication: THROMBOSIS PROPHYLAXIS
     Dosage: DAILY DOSE 100MG
     Route: 048
     Dates: end: 20190114
  7. GRAMALIL [Concomitant]
     Active Substance: TIAPRIDE HYDROCHLORIDE
     Indication: AGGRESSION
     Dosage: DAILY DOSE 50 MG
     Route: 048
     Dates: start: 20190117, end: 20190119
  8. ZYPREXA [Concomitant]
     Active Substance: OLANZAPINE
     Indication: RESTLESSNESS
     Dosage: DAILY DOSE 2.5 MG
     Route: 048
     Dates: start: 20181213, end: 20181226
  9. CERCINE [Concomitant]
     Active Substance: DIAZEPAM
     Indication: RESTLESSNESS
     Dosage: DAILY DOSE 4MG
     Route: 048
     Dates: start: 20181227, end: 20190111

REACTIONS (3)
  - Abnormal behaviour [Not Recovered/Not Resolved]
  - Dementia [Not Recovered/Not Resolved]
  - Off label use [None]

NARRATIVE: CASE EVENT DATE: 20190115
